FAERS Safety Report 9164169 (Version 1)
Quarter: 2013Q1

REPORT INFORMATION
  Report Type: Spontaneous
  Country: US (occurrence: None)
  Receive Date: 20130313
  Receipt Date: 20130313
  Transmission Date: 20140127
  Serious: Yes (Life-Threatening, Hospitalization, Disabling, Other)
  Sender: FDA-Public Use
  Company Number: None

PATIENT
  Age: 42 Year
  Sex: Female
  Weight: 65.77 kg

DRUGS (1)
  1. BOTOX [Suspect]
     Indication: SKIN COSMETIC PROCEDURE
     Dosage: 40 UNITS EVERYTHREE MONTHS IM ?WORST SYSTEM EFFECTS 8/27/2012--3/11/2013
     Route: 030
     Dates: start: 20050414, end: 20121204

REACTIONS (12)
  - Multi-organ failure [None]
  - Diabetes insipidus [None]
  - Irritable bowel syndrome [None]
  - Gallbladder disorder [None]
  - Impaired gastric emptying [None]
  - Lichen planus [None]
  - Dyspnoea [None]
  - Arthralgia [None]
  - Vision blurred [None]
  - Asthenia [None]
  - Hypoaesthesia [None]
  - Lip swelling [None]
